FAERS Safety Report 5401619-1 (Version None)
Quarter: 2007Q3

REPORT INFORMATION
  Report Type: 
  Country: None (occurrence: None)
  Receive Date: 20070731
  Receipt Date: 20070720
  Transmission Date: 20080115
  Serious: Yes (Other)
  Sender: FDA-Public Use
  Company Number: US-PFIZER INC-2007061320

PATIENT
  Sex: Female
  Weight: 108.18 kg

DRUGS (1)
  1. CHANTIX [Suspect]
     Indication: SMOKING CESSATION THERAPY
     Dates: start: 20070401, end: 20070601

REACTIONS (3)
  - ABASIA [None]
  - DYSPNOEA [None]
  - PULMONARY FUNCTION TEST ABNORMAL [None]
